FAERS Safety Report 8332699-1 (Version None)
Quarter: 2012Q2

REPORT INFORMATION
  Report Type: 
  Country: None (occurrence: None)
  Receive Date: 20120503
  Receipt Date: 20120209
  Transmission Date: 20120825
  Serious: No
  Sender: FDA-Public Use
  Company Number: US-MYLANLABS-2012S1003207

PATIENT
  Age: 54 Year
  Sex: Female

DRUGS (2)
  1. MORPHINE SULFATE [Suspect]
     Indication: PAIN
     Route: 048
     Dates: start: 20120112
  2. MORPHINE SULFATE [Suspect]
     Route: 048
     Dates: start: 20120112

REACTIONS (2)
  - DRUG EFFECT DECREASED [None]
  - PAIN [None]
